FAERS Safety Report 25900744 (Version 1)
Quarter: 2025Q4

REPORT INFORMATION
  Report Type: Spontaneous
  Country: EU (occurrence: EU)
  Receive Date: 20251009
  Receipt Date: 20251009
  Transmission Date: 20260118
  Serious: Yes (Other)
  Sender: AUROBINDO
  Company Number: EU-AUROBINDO-AUR-APL-2025-051047

PATIENT
  Sex: Male

DRUGS (27)
  1. METFORMIN [Suspect]
     Active Substance: METFORMIN HYDROCHLORIDE
     Indication: Type 2 diabetes mellitus
     Dosage: 1000 MILLIGRAM, TWO TIMES A DAY
     Route: 065
     Dates: start: 2004
  2. METFORMIN [Suspect]
     Active Substance: METFORMIN HYDROCHLORIDE
     Dosage: 1000 MILLIGRAM, TWO TIMES A DAY
     Route: 065
     Dates: start: 2006
  3. METFORMIN [Suspect]
     Active Substance: METFORMIN HYDROCHLORIDE
     Dosage: 1000 MILLIGRAM, TWO TIMES A DAY
     Route: 065
     Dates: start: 2014
  4. METFORMIN [Suspect]
     Active Substance: METFORMIN HYDROCHLORIDE
     Dosage: 1000 MILLIGRAM, TWO TIMES A DAY
     Route: 065
     Dates: start: 2015
  5. METFORMIN [Suspect]
     Active Substance: METFORMIN HYDROCHLORIDE
     Dosage: 1000 MILLIGRAM, TWO TIMES A DAY
     Route: 065
     Dates: start: 2018
  6. METFORMIN [Suspect]
     Active Substance: METFORMIN HYDROCHLORIDE
     Dosage: 1000 MILLIGRAM, TWO TIMES A DAY
     Route: 065
     Dates: start: 2020
  7. METFORMIN [Suspect]
     Active Substance: METFORMIN HYDROCHLORIDE
     Dosage: 1000 MILLIGRAM, TWO TIMES A DAY
     Route: 065
     Dates: start: 2021
  8. METFORMIN [Suspect]
     Active Substance: METFORMIN HYDROCHLORIDE
     Dosage: 1000 MILLIGRAM, TWO TIMES A DAY
     Route: 065
     Dates: start: 2022
  9. METFORMIN [Suspect]
     Active Substance: METFORMIN HYDROCHLORIDE
     Dosage: 1000 MILLIGRAM, TWO TIMES A DAY
     Route: 065
     Dates: start: 2023
  10. METFORMIN [Suspect]
     Active Substance: METFORMIN HYDROCHLORIDE
     Dosage: 1000 MILLIGRAM, TWO TIMES A DAY
     Route: 065
     Dates: start: 2024
  11. METFORMIN [Suspect]
     Active Substance: METFORMIN HYDROCHLORIDE
     Dosage: 1000 MILLIGRAM, TWO TIMES A DAY
     Route: 065
     Dates: start: 2025
  12. AMLODIPINE\RAMIPRIL [Concomitant]
     Active Substance: AMLODIPINE\RAMIPRIL
     Indication: Hypertension
     Dosage: UNK
     Route: 065
  13. ATORVASTATIN [Concomitant]
     Active Substance: ATORVASTATIN
     Indication: Dyslipidaemia
     Dosage: UNK
     Route: 065
  14. GLIMEPIRIDE [Concomitant]
     Active Substance: GLIMEPIRIDE
     Indication: Type 2 diabetes mellitus
     Dosage: 4 MILLIGRAM, DAILY
     Route: 065
     Dates: start: 2006
  15. GLIMEPIRIDE [Concomitant]
     Active Substance: GLIMEPIRIDE
     Dosage: 4 MILLIGRAM, DAILY
     Route: 065
     Dates: start: 2014
  16. GLIMEPIRIDE [Concomitant]
     Active Substance: GLIMEPIRIDE
     Dosage: 4 MILLIGRAM, DAILY
     Route: 065
     Dates: start: 2015
  17. ISOPHANE INSULIN [Concomitant]
     Active Substance: INSULIN NOS
     Indication: Type 2 diabetes mellitus
     Dosage: 20 INTERNATIONAL UNIT, DAILY (20 UNITS APPLIED ONCE DAILY BEFORE BEDTIME)
     Route: 065
     Dates: start: 2014
  18. ISOPHANE INSULIN [Concomitant]
     Active Substance: INSULIN NOS
     Dosage: 20 INTERNATIONAL UNIT, DAILY
     Route: 065
     Dates: start: 2015
  19. INSULIN LISPRO [Concomitant]
     Active Substance: INSULIN LISPRO
     Indication: Type 2 diabetes mellitus
     Dosage: 8-12-8 BEFORE MAIN MEALS
     Route: 065
  20. INSULIN GLARGINE\LIXISENATIDE [Concomitant]
     Active Substance: INSULIN GLARGINE\LIXISENATIDE
     Indication: Type 2 diabetes mellitus
     Dosage: 100/50 20-30 U/D
     Route: 065
     Dates: start: 2020
  21. INSULIN GLARGINE\LIXISENATIDE [Concomitant]
     Active Substance: INSULIN GLARGINE\LIXISENATIDE
     Dosage: 100/50 26?28 U/D
     Route: 065
     Dates: start: 2021
  22. INSULIN GLARGINE\LIXISENATIDE [Concomitant]
     Active Substance: INSULIN GLARGINE\LIXISENATIDE
     Dosage: 100/50 26?28 U/D
     Route: 065
     Dates: start: 2022
  23. INSULIN GLARGINE\LIXISENATIDE [Concomitant]
     Active Substance: INSULIN GLARGINE\LIXISENATIDE
     Dosage: 100/50 26?28 U/D
     Route: 065
     Dates: start: 2023
  24. INSULIN GLARGINE\LIXISENATIDE [Concomitant]
     Active Substance: INSULIN GLARGINE\LIXISENATIDE
     Dosage: 100/50 26?28 U/D
     Route: 065
     Dates: start: 2024
  25. INSULIN GLARGINE\LIXISENATIDE [Concomitant]
     Active Substance: INSULIN GLARGINE\LIXISENATIDE
     Dosage: 100/50 26?28 U/D
     Route: 065
     Dates: start: 2025
  26. HUMALOG [Concomitant]
     Active Substance: INSULIN LISPRO
     Indication: Type 2 diabetes mellitus
     Dosage: 8-12-8 U
     Route: 065
     Dates: start: 2018
  27. LANTUS [Concomitant]
     Active Substance: INSULIN GLARGINE
     Indication: Type 2 diabetes mellitus
     Dosage: 26 INTERNATIONAL UNIT, DAILY (26 U/D)
     Route: 065
     Dates: start: 2018

REACTIONS (1)
  - Drug ineffective [Unknown]
